FAERS Safety Report 8552316 (Version 3)
Quarter: 2013Q2

REPORT INFORMATION
  Report Type: Report from Study
  Country: JP (occurrence: JP)
  Receive Date: 20120508
  Receipt Date: 20130426
  Transmission Date: 20140414
  Serious: Yes (Other)
  Sender: FDA-Public Use
  Company Number: JP-VERTEX PHARMACEUTICALS INC.-AE-2012-006171

PATIENT
  Age: 60 Year
  Sex: Male

DRUGS (23)
  1. VX-950 (TELAPREVIR) [Suspect]
     Indication: CHRONIC HEPATITIS C
     Dosage: 2250 MG, QD
     Route: 048
     Dates: start: 20120302, end: 20120410
  2. VX-950 (TELAPREVIR) [Suspect]
     Dosage: 1500 MG, QD
     Route: 048
     Dates: start: 20120411, end: 20120412
  3. PEGINTRON [Suspect]
     Indication: CHRONIC HEPATITIS C
     Dosage: 1.4 ?G/KG, QW
     Route: 058
     Dates: start: 20120302, end: 20120323
  4. PEGINTRON [Suspect]
     Dosage: 60 ?G, QW
     Route: 058
     Dates: start: 20120329, end: 20120329
  5. PEGINTRON [Suspect]
     Dosage: 100 ?G, QW
     Route: 058
     Dates: start: 20120407, end: 20120412
  6. REBETOL [Suspect]
     Indication: CHRONIC HEPATITIS C
     Dosage: 800 MG, QD
     Route: 048
     Dates: start: 20120302, end: 20120325
  7. REBETOL [Suspect]
     Dosage: 600 MG, QD
     Route: 048
     Dates: start: 20120326, end: 20120328
  8. REBETOL [Suspect]
     Dosage: 600 MG/2 DAYS
     Route: 048
     Dates: start: 20120329, end: 20120331
  9. REBETOL [Suspect]
     Dosage: 400 MG/2 DAYS
     Route: 048
     Dates: start: 20120330, end: 20120401
  10. REBETOL [Suspect]
     Dosage: 400 MG, QD
     Route: 048
     Dates: start: 20120402, end: 20120410
  11. REBETOL [Suspect]
     Dosage: 200 MG, QD
     Route: 048
     Dates: start: 20120411, end: 20120412
  12. ALLEGRA [Concomitant]
     Dosage: 120 MG, QD
     Route: 048
     Dates: start: 20120302, end: 20120412
  13. GASMOTIN [Concomitant]
     Dosage: 15 MG, QD
     Route: 048
     Dates: start: 20120302, end: 20120412
  14. BENIDIPINE HYDROCHLORIDE [Concomitant]
     Dosage: 4 MG, QD
     Route: 048
     Dates: start: 20120302
  15. RENIVEZE [Concomitant]
     Dosage: 5 MG, QD
     Route: 048
     Dates: start: 20120302
  16. VOGLIBOSE OD [Concomitant]
     Dosage: 0.6 MG, QD
     Route: 048
     Dates: start: 20120302, end: 20120414
  17. JANUVIA [Concomitant]
     Dosage: 50 MG, QD
     Route: 048
     Dates: end: 20120414
  18. URSO [Concomitant]
     Dosage: 600 MG, QD
     Route: 048
     Dates: start: 20120414
  19. EQUA [Concomitant]
     Dosage: 50 MG, QD
     Route: 048
     Dates: start: 20120414
  20. SEIBULE [Concomitant]
     Dosage: 75 MG, QD
     Route: 048
     Dates: start: 20120414
  21. MAGLAX [Concomitant]
     Dosage: 990 MG, QD
     Route: 048
     Dates: start: 20120414
  22. LACTULOSE [Concomitant]
     Dosage: 3 DF, QD
     Route: 048
     Dates: start: 20120418
  23. BAYASPIRIN [Concomitant]
     Dosage: 100 MG, QD
     Dates: start: 20120422

REACTIONS (4)
  - Blood glucose increased [Recovered/Resolved]
  - Retinopathy [Recovered/Resolved]
  - Hyperuricaemia [Recovered/Resolved]
  - Haemoglobin decreased [Recovered/Resolved]
